FAERS Safety Report 4494459-1 (Version None)
Quarter: 2004Q4

REPORT INFORMATION
  Report Type: 
  Country: None (occurrence: None)
  Receive Date: 20041102
  Receipt Date: 20041019
  Transmission Date: 20050328
  Serious: Yes (Hospitalization)
  Sender: FDA-Public Use
  Company Number: 2004239725FR

PATIENT
  Age: 51 Year
  Sex: Male

DRUGS (3)
  1. CAMPTOSAR [Suspect]
     Indication: OESOPHAGEAL CARCINOMA
     Dosage: 60 MG/M2, EVERY WEEKS, IV
     Route: 042
     Dates: start: 20040112, end: 20040112
  2. CISPLATIN [Suspect]
     Indication: OESOPHAGEAL CARCINOMA
     Dosage: 30 MG/M2, EVERY WEEKS, IV
     Route: 042
     Dates: start: 20040112, end: 20040112
  3. RADIOTHERAPY [Suspect]
     Indication: OESOPHAGEAL CARCINOMA
     Dosage: 2 GRAY, QD, D1-D5, EVEY WEEK, UNK
     Dates: start: 20040105

REACTIONS (2)
  - DYSPHAGIA [None]
  - PAIN [None]
